FAERS Safety Report 5573283-2 (Version None)
Quarter: 2007Q4

REPORT INFORMATION
  Report Type: 
  Country: None (occurrence: None)
  Receive Date: 20071224
  Receipt Date: 20071219
  Transmission Date: 20080405
  Serious: Yes (Death, Other)
  Sender: FDA-Public Use
  Company Number: PHBS2007BR21246

PATIENT
  Age: 81 Year
  Sex: Female
  Weight: 52 kg

DRUGS (4)
  1. LEPONEX [Suspect]
     Indication: DEMENTIA ALZHEIMER'S TYPE
     Dosage: 25 MG, QHS
     Route: 048
     Dates: start: 19990101
  2. ANAFRANIL [Suspect]
     Indication: DEMENTIA ALZHEIMER'S TYPE
     Dosage: 10 MG, QHS
     Route: 048
     Dates: start: 19990101
  3. CAPOTEN [Concomitant]
     Indication: HYPERTENSION
     Dosage: 12 MG, BID
     Route: 048
     Dates: start: 20050101
  4. CAPOTEN [Concomitant]
     Dosage: UNK, PRN

REACTIONS (4)
  - BLOOD PRESSURE FLUCTUATION [None]
  - CARDIAC ARREST [None]
  - MYOCARDIAL INFARCTION [None]
  - URINARY TRACT INFECTION [None]
